FAERS Safety Report 7898732-6 (Version None)
Quarter: 2011Q4

REPORT INFORMATION
  Report Type: 
  Country: None (occurrence: None)
  Receive Date: 20111107
  Receipt Date: 20101117
  Transmission Date: 20120403
  Serious: No
  Sender: FDA-Public Use
  Company Number: US-ABBOTT-10P-163-0686781-00

PATIENT
  Sex: Female
  Weight: 76.272 kg

DRUGS (8)
  1. BONIVA [Concomitant]
     Indication: OSTEOPOROSIS
  2. ASPIRIN [Suspect]
     Indication: PRODUCT USED FOR UNKNOWN INDICATION
  3. TEKTURNA [Concomitant]
     Indication: HYPERTENSION
  4. CRESTOR [Concomitant]
     Indication: BLOOD CHOLESTEROL INCREASED
  5. TRICOR [Suspect]
     Indication: BLOOD TRIGLYCERIDES INCREASED
     Dates: start: 20020101, end: 20070101
  6. LEVOTHYROXINE SODIUM [Concomitant]
     Indication: HYPOTHYROIDISM
  7. HYZAAR [Suspect]
     Indication: HYPERTENSION
     Dates: end: 20070101
  8. CALCIUM CARBONATE [Concomitant]
     Indication: MINERAL SUPPLEMENTATION

REACTIONS (2)
  - TINNITUS [None]
  - MUSCLE DISORDER [None]
